FAERS Safety Report 6411538-X (Version None)
Quarter: 2009Q4

REPORT INFORMATION
  Report Type: 
  Country: None (occurrence: None)
  Receive Date: 20091023
  Receipt Date: 20091015
  Transmission Date: 20100525
  Serious: Yes (Hospitalization, Other)
  Sender: FDA-Public Use
  Company Number: DE-JNJFOC-20080805836

PATIENT
  Age: 36 Year
  Sex: Male
  Weight: 86 kg

DRUGS (5)
  1. HALDOL [Suspect]
     Indication: SCHIZOPHRENIA, PARANOID TYPE
     Route: 048
     Dates: start: 20071102, end: 20071105
  2. HALDOL [Suspect]
     Route: 042
     Dates: start: 20071102, end: 20071104
  3. DIAZEPAM [Concomitant]
     Indication: SCHIZOPHRENIA, PARANOID TYPE
     Route: 048
     Dates: start: 20071102, end: 20071118
  4. DIAZEPAM [Concomitant]
     Route: 042
  5. AKINETON [Concomitant]
     Indication: SCHIZOPHRENIA, PARANOID TYPE
     Route: 048

REACTIONS (1)
  - HEPATITIS ACUTE [None]
